FAERS Safety Report 14723724 (Version 1)
Quarter: 2018Q2

REPORT INFORMATION
  Report Type: Spontaneous
  Country: US (occurrence: US)
  Receive Date: 20180405
  Receipt Date: 20180405
  Transmission Date: 20180711
  Serious: Yes (Hospitalization)
  Sender: FDA-Public Use
  Company Number: US-VERTEX PHARMACEUTICALS-2018-002197

PATIENT
  Age: 14 Year
  Sex: Female

DRUGS (11)
  1. CIPROFLOXACIN. [Concomitant]
     Active Substance: CIPROFLOXACIN
  2. ZONISAMIDE. [Concomitant]
     Active Substance: ZONISAMIDE
  3. ORKAMBI [Suspect]
     Active Substance: IVACAFTOR\LUMACAFTOR
     Indication: CYSTIC FIBROSIS
     Dosage: 2 TABLETS (200/125 MG EACH), BID
     Route: 048
     Dates: start: 20150723
  4. FLUTICASONE. [Concomitant]
     Active Substance: FLUTICASONE
  5. OSELTAMIVIR [Concomitant]
     Active Substance: OSELTAMIVIR
  6. AMOXICILLIN. [Concomitant]
     Active Substance: AMOXICILLIN
  7. LAMOTRIGINE. [Concomitant]
     Active Substance: LAMOTRIGINE
  8. CITALOPRAM [Concomitant]
     Active Substance: CITALOPRAM HYDROBROMIDE
  9. COMPLETE MULTI VIT [Concomitant]
  10. LINEZOLID. [Concomitant]
     Active Substance: LINEZOLID
  11. TOBI [Concomitant]
     Active Substance: TOBRAMYCIN

REACTIONS (3)
  - Decreased appetite [Unknown]
  - Hospitalisation [Not Recovered/Not Resolved]
  - Weight decreased [Unknown]

NARRATIVE: CASE EVENT DATE: 201803
